FAERS Safety Report 12719149 (Version 1)
Quarter: 2016Q3

REPORT INFORMATION
  Report Type: Spontaneous
  Country: US (occurrence: US)
  Receive Date: 20160907
  Receipt Date: 20160907
  Transmission Date: 20161109
  Serious: No
  Sender: FDA-Public Use
  Company Number: US-JNJFOC-20160706024

PATIENT
  Sex: Male

DRUGS (5)
  1. SPIRONOLACTONE. [Concomitant]
     Active Substance: SPIRONOLACTONE
     Route: 065
  2. XANAX [Concomitant]
     Active Substance: ALPRAZOLAM
     Route: 065
  3. DURAGESIC [Suspect]
     Active Substance: FENTANYL
     Indication: PRODUCT USED FOR UNKNOWN INDICATION
     Dosage: FOR APPROXIMATELY 14-15 YEARS
     Route: 062
     Dates: start: 2001
  4. TESTOSTERONE. [Interacting]
     Active Substance: TESTOSTERONE
     Indication: FATIGUE
     Dosage: APPLY ONE PACKET DAILY
     Route: 061
     Dates: start: 20150515
  5. TESTOSTERONE. [Interacting]
     Active Substance: TESTOSTERONE
     Indication: BLOOD TESTOSTERONE DECREASED
     Dosage: APPLY ONE PACKET DAILY
     Route: 061
     Dates: start: 20150515

REACTIONS (4)
  - Drug ineffective for unapproved indication [Unknown]
  - Fatigue [Unknown]
  - Blood testosterone decreased [Unknown]
  - Drug interaction [Unknown]
